FAERS Safety Report 5814398-0 (Version None)
Quarter: 2008Q3

REPORT INFORMATION
  Report Type: 
  Country: None (occurrence: None)
  Receive Date: 20080718
  Receipt Date: 20080708
  Transmission Date: 20090109
  Serious: Yes (Other)
  Sender: FDA-Public Use
  Company Number: FR-JNJFOC-20080502671

PATIENT
  Sex: Male
  Weight: 56 kg

DRUGS (5)
  1. PREZISTA [Suspect]
     Indication: HIV INFECTION
     Route: 048
  2. ISENTRESS [Concomitant]
     Route: 048
  3. ISENTRESS [Concomitant]
     Indication: HIV INFECTION
     Route: 048
  4. TRUVADA [Concomitant]
     Route: 048
  5. TRUVADA [Concomitant]
     Indication: HIV INFECTION
     Route: 048

REACTIONS (1)
  - HEPATITIS B [None]
